FAERS Safety Report 10077218 (Version 2)
Quarter: 2014Q2

REPORT INFORMATION
  Report Type: Spontaneous
  Country: US (occurrence: US)
  Receive Date: 20140414
  Receipt Date: 20140414
  Transmission Date: 20141212
  Serious: No
  Sender: FDA-Public Use
  Company Number: US-BANPHARM-20130980

PATIENT
  Age: 44 Year
  Sex: Female
  Weight: 70.31 kg

DRUGS (1)
  1. ALEVE LIQUID GELS 220MG [Suspect]
     Indication: BACK PAIN
     Dosage: 1 DF, ONCE,
     Route: 048
     Dates: start: 20130305, end: 20130305

REACTIONS (3)
  - Paraesthesia oral [Recovered/Resolved]
  - Lip swelling [Not Recovered/Not Resolved]
  - Lip pain [Not Recovered/Not Resolved]
